FAERS Safety Report 4598044-2 (Version None)
Quarter: 2005Q2

REPORT INFORMATION
  Report Type: 
  Country: None (occurrence: None)
  Receive Date: 20050207
  Receipt Date: 20040519
  Transmission Date: 20051028
  Serious: Yes (Hospitalization)
  Sender: FDA-Public Use
  Company Number: MEDI-0001865

PATIENT
  Age: 52 Year
  Sex: Male
  Weight: 90.2658 kg

DRUGS (11)
  1. ETHYOL [Suspect]
     Indication: CHEMOTHERAPY
     Dosage: 500 MG, QD, SUBCUTANEOUS
     Route: 058
     Dates: start: 20040428, end: 20040507
  2. ETHYOL [Suspect]
     Indication: RADIOTHERAPY
     Dosage: 500 MG, QD, SUBCUTANEOUS
     Route: 058
     Dates: start: 20040428, end: 20040507
  3. ETHYOL [Suspect]
     Indication: CHEMOTHERAPY
     Dosage: 500 MG, QD, SUBCUTANEOUS
     Route: 058
     Dates: start: 20040510
  4. ETHYOL [Suspect]
     Indication: RADIOTHERAPY
     Dosage: 500 MG, QD, SUBCUTANEOUS
     Route: 058
     Dates: start: 20040510
  5. RADIATION THERAPY [Concomitant]
  6. PREVACID [Concomitant]
  7. AXID [Concomitant]
  8. HYDROCODONE BITARTRATE [Concomitant]
  9. VALIUM [Concomitant]
  10. CISPLATIN [Concomitant]
  11. LIDOCAINE HCL VISCOUS [Concomitant]

REACTIONS (2)
  - HYPOTENSION [None]
  - RASH GENERALISED [None]
